FAERS Safety Report 8591251-3 (Version None)
Quarter: 2012Q3

REPORT INFORMATION
  Report Type: 
  Country: None (occurrence: None)
  Receive Date: 20120813
  Receipt Date: 20120806
  Transmission Date: 20120928
  Serious: Yes (Hospitalization)
  Sender: FDA-Public Use
  Company Number: JP-BRISTOL-MYERS SQUIBB COMPANY-16431876

PATIENT
  Age: 78 Year
  Sex: Female
  Weight: 49 kg

DRUGS (6)
  1. PREDNISOLONE [Concomitant]
     Indication: RHEUMATOID ARTHRITIS
     Route: 048
  2. PROGRAF [Concomitant]
     Indication: RHEUMATOID ARTHRITIS
  3. ORENCIA [Suspect]
     Indication: RHEUMATOID ARTHRITIS
     Dosage: DATE OF ADMISINI:27JAN11,10FEB11:48KG,23FEB11:46.6KG,23MAR11,04APR11:44KG,04MAY11:45KG,06JUN11:44KG
     Route: 042
     Dates: start: 20110127
  4. METHOTREXATE [Suspect]
     Indication: RHEUMATOID ARTHRITIS
     Dates: end: 20110909
  5. TOCILIZUMAB [Concomitant]
     Indication: RHEUMATOID ARTHRITIS
     Dates: start: 20091005, end: 20110124
  6. SULFASALAZINE [Concomitant]
     Indication: RHEUMATOID ARTHRITIS

REACTIONS (2)
  - DIVERTICULITIS [None]
  - DUODENAL STENOSIS [None]
